FAERS Safety Report 4732897-X (Version None)
Quarter: 2005Q3

REPORT INFORMATION
  Report Type: 
  Country: None (occurrence: None)
  Receive Date: 20050803
  Receipt Date: 20050502
  Transmission Date: 20060218
  Serious: No
  Sender: FDA-Public Use
  Company Number: US-GLAXOSMITHKLINE-A0556922A

PATIENT
  Sex: Female

DRUGS (3)
  1. AVANDAMET [Suspect]
     Route: 048
     Dates: start: 20051101
  2. METFORMIN [Concomitant]
  3. AMARYL [Concomitant]

REACTIONS (2)
  - DIABETES MELLITUS INADEQUATE CONTROL [None]
  - DRUG INEFFECTIVE [None]
